FAERS Safety Report 16909116 (Version 1)
Quarter: 2019Q4

REPORT INFORMATION
  Report Type: Spontaneous
  Country: MY (occurrence: MY)
  Receive Date: 20191011
  Receipt Date: 20191011
  Transmission Date: 20200122
  Serious: Yes (Death)
  Sender: FDA-Public Use
  Company Number: MY-PFIZER INC-2019435186

PATIENT

DRUGS (1)
  1. ERAXIS [Suspect]
     Active Substance: ANIDULAFUNGIN
     Indication: PNEUMONIA FUNGAL
     Dosage: UNK

REACTIONS (1)
  - Death [Fatal]
